FAERS Safety Report 6731439-7 (Version None)
Quarter: 2010Q2

REPORT INFORMATION
  Report Type: 
  Country: None (occurrence: None)
  Receive Date: 20100518
  Receipt Date: 20100518
  Transmission Date: 20101027
  Serious: Yes (Hospitalization)
  Sender: FDA-Public Use
  Company Number: None

PATIENT
  Age: 64 Year
  Sex: Male

DRUGS (12)
  1. HYDROCHLOROTHIAZIDE [Suspect]
     Indication: HYPERTENSION
     Dosage: 25MG DAILY PO
     Route: 048
  2. LISINOPRIL [Suspect]
     Indication: HYPERTENSION
     Dosage: 40MG DAILY PO
     Route: 048
  3. LOPRESSOR [Concomitant]
  4. CRESTOR [Concomitant]
  5. NOVOLOG [Concomitant]
  6. NORVASC [Concomitant]
  7. ASPIRIN [Concomitant]
  8. GAPENTIN [Concomitant]
  9. OXYCODONE [Concomitant]
  10. FLEXERIL [Concomitant]
  11. ROSUVASTATIN [Concomitant]
  12. LANTUS [Concomitant]

REACTIONS (2)
  - PRESYNCOPE [None]
  - RENAL FAILURE ACUTE [None]
